FAERS Safety Report 7830746-4 (Version None)
Quarter: 2011Q4

REPORT INFORMATION
  Report Type: 
  Country: None (occurrence: None)
  Receive Date: 20111021
  Receipt Date: 20111007
  Transmission Date: 20120403
  Serious: Yes (Other)
  Sender: FDA-Public Use
  Company Number: DE-UCBSA-043725

PATIENT

DRUGS (9)
  1. METOPROLOL TARTRATE [Concomitant]
     Indication: HYPERTENSION
     Dosage: UNKNOWN DOSAGE
     Dates: start: 20110225
  2. VIMPAT [Suspect]
     Indication: EPILEPSY
     Dates: start: 20110225
  3. HYDROCHLOROTHIAZIDE [Concomitant]
     Indication: HYPERTENSION
     Dosage: UNKNOWN DOSAGE
     Dates: start: 20110225
  4. LEVOTHYROXINE SODIUM [Concomitant]
     Indication: HYPERTHYROIDISM
     Dosage: UNKNOWN DOSAGE
     Dates: start: 20110225
  5. RAMIPRIL [Concomitant]
     Indication: HYPERTENSION
     Dosage: UNKNOWN DOSAGE
     Dates: start: 20110225
  6. GLIMEPIRID [Concomitant]
     Indication: DIABETES MELLITUS
     Dosage: UNKNOWN DOSAGE
     Dates: start: 20110225
  7. SITAGLIPTIN [Concomitant]
     Indication: DIABETES MELLITUS
     Dosage: UNKNOWN DOSAGE
     Dates: start: 20110225
  8. VALSARTAN [Concomitant]
     Indication: HYPERTENSION
     Dosage: UNKNOWN DOSAGE
     Dates: start: 20110225
  9. DOXAZOSIN MESYLATE [Concomitant]
     Indication: HYPERTENSION
     Dosage: UNKNOWN DOSAGE
     Dates: start: 20110225

REACTIONS (1)
  - NEOPLASM PROGRESSION [None]
